FAERS Safety Report 18199001 (Version 1)
Quarter: 2020Q3

REPORT INFORMATION
  Report Type: Spontaneous
  Country: US (occurrence: US)
  Receive Date: 20200826
  Receipt Date: 20200826
  Transmission Date: 20201103
  Serious: Yes (Death, Other)
  Sender: FDA-Public Use
  Company Number: US-PURDUE-USA-2020-0162795

PATIENT
  Age: 27 Year
  Sex: Male

DRUGS (1)
  1. OXYCONTIN [Suspect]
     Active Substance: OXYCODONE HYDROCHLORIDE
     Indication: PAIN
     Route: 048

REACTIONS (4)
  - Hypoxic-ischaemic encephalopathy [Fatal]
  - Toxicity to various agents [Fatal]
  - Drug dependence [Unknown]
  - Overdose [Unknown]

NARRATIVE: CASE EVENT DATE: 20100201
